FAERS Safety Report 5306245-0 (Version None)
Quarter: 2007Q2

REPORT INFORMATION
  Report Type: 
  Country: None (occurrence: None)
  Receive Date: 20070424
  Receipt Date: 20070419
  Transmission Date: 20071010
  Serious: Yes (Other)
  Sender: FDA-Public Use
  Company Number: GB-SHR-GB-2007-002770

PATIENT
  Age: 61 Year

DRUGS (6)
  1. CAMPATH [Suspect]
     Indication: PROPHYLAXIS AGAINST TRANSPLANT REJECTION
     Dosage: 30 MG DAY 0 AND DAY +1
     Route: 042
  2. CAMPATH [Suspect]
     Dosage: 30 MG, UNK
     Route: 042
  3. METHYLPREDNISOLONE 16MG TAB [Concomitant]
     Indication: PREMEDICATION
     Dosage: 500 MG, 1 DOSE
     Route: 042
  4. TACROLIMUS [Concomitant]
     Indication: PROPHYLAXIS AGAINST TRANSPLANT REJECTION
     Dosage: 1 MG, 2X/DAY
     Route: 048
     Dates: start: 20050101, end: 20050101
  5. MYCOPHENOLATE MOFETIL [Concomitant]
     Indication: PROPHYLAXIS AGAINST TRANSPLANT REJECTION
     Dosage: 500 MG, 2X/DAY
     Route: 048
  6. SIROLIMUS [Concomitant]
     Indication: PROPHYLAXIS AGAINST TRANSPLANT REJECTION
     Dosage: 4 MG, 1X/DAY
     Route: 048

REACTIONS (1)
  - LYMPHOPROLIFERATIVE DISORDER [None]
